FAERS Safety Report 4900309-9 (Version None)
Quarter: 2006Q1

REPORT INFORMATION
  Report Type: 
  Country: None (occurrence: None)
  Receive Date: 20060203
  Receipt Date: 20051102
  Transmission Date: 20060701
  Serious: Yes (Hospitalization)
  Sender: FDA-Public Use
  Company Number: HQWYE421104NOV05

PATIENT
  Sex: Female
  Weight: 59 kg

DRUGS (14)
  1. ENBREL [Suspect]
     Indication: RHEUMATOID ARTHRITIS
     Route: 058
     Dates: start: 20050613
  2. ENBREL [Suspect]
     Route: 058
     Dates: start: 20051110
  3. PREDNISOLONE [Suspect]
     Indication: RHEUMATOID ARTHRITIS
     Route: 048
     Dates: start: 20000101
  4. PREDNISOLONE [Suspect]
     Route: 048
     Dates: start: 20041115
  5. PREDNISOLONE [Suspect]
     Route: 048
  6. RHEUMATREX [Suspect]
     Indication: RHEUMATOID ARTHRITIS
     Route: 048
     Dates: start: 20000101, end: 20040501
  7. RHEUMATREX [Suspect]
     Dosage: DOSE AND FREQUENCY NOT SPECIFIED
     Route: 048
     Dates: start: 20041001
  8. RHEUMATREX [Suspect]
     Route: 048
     Dates: start: 20041115
  9. ISONIAZID [Concomitant]
     Indication: PROPHYLAXIS
     Route: 048
     Dates: start: 20050609
  10. FOLIAMIN [Concomitant]
     Route: 048
     Dates: start: 20050121
  11. LOXONIN [Concomitant]
     Indication: RHEUMATOID ARTHRITIS
     Route: 048
     Dates: start: 20041130
  12. LANSOPRAZOLE [Concomitant]
     Indication: PROPHYLAXIS
     Route: 048
     Dates: start: 20041130
  13. SELBEX [Concomitant]
     Indication: PROPHYLAXIS
     Route: 048
     Dates: start: 20041130
  14. BROTIZOLAM [Concomitant]
     Indication: INSOMNIA
     Route: 048

REACTIONS (9)
  - BACILLUS INFECTION [None]
  - BODY TEMPERATURE INCREASED [None]
  - C-REACTIVE PROTEIN INCREASED [None]
  - CHILLS [None]
  - DRUG INEFFECTIVE [None]
  - HEPATOCELLULAR DAMAGE [None]
  - MICROCOCCUS INFECTION [None]
  - PLEURISY [None]
  - PYELONEPHRITIS ACUTE [None]
